FAERS Safety Report 21738201 (Version 2)
Quarter: 2022Q4

REPORT INFORMATION
  Report Type: Report from Study
  Country: IN (occurrence: IN)
  Receive Date: 20221216
  Receipt Date: 20221220
  Transmission Date: 20230112
  Serious: Yes (Death)
  Sender: FDA-Public Use
  Company Number: IN-002147023-NVSC2022IN289728

PATIENT
  Age: 0 Year
  Sex: Female
  Weight: 7.45 kg

DRUGS (1)
  1. ZOLGENSMA [Suspect]
     Active Substance: ONASEMNOGENE ABEPARVOVEC-XIOI
     Indication: Spinal muscular atrophy
     Dosage: 46.8 ML, ONCE/SINGLE
     Route: 042
     Dates: start: 20210629

REACTIONS (3)
  - Unresponsive to stimuli [Fatal]
  - Cyanosis [Fatal]
  - General physical health deterioration [Unknown]

NARRATIVE: CASE EVENT DATE: 20221209
